FAERS Safety Report 8185201 (Version 7)
Quarter: 2017Q3

REPORT INFORMATION
  Report Type: Spontaneous
  Country: US (occurrence: US)
  Receive Date: 20111018
  Receipt Date: 20170717
  Transmission Date: 20171128
  Serious: Yes (Hospitalization, Other)
  Sender: FDA-Public Use
  Company Number: US-ASTRAZENECA-2011SE10858

PATIENT
  Age: 818 Month
  Sex: Female
  Weight: 98.9 kg

DRUGS (60)
  1. SYMBICORT [Suspect]
     Active Substance: BUDESONIDE\FORMOTEROL FUMARATE DIHYDRATE
     Indication: CHRONIC OBSTRUCTIVE PULMONARY DISEASE
     Dosage: 160 MCG-4.5, 2 PUFFS  TWO TIMES EVERYDAY UNKNOWN
     Route: 055
     Dates: start: 20120509
  2. ALBUTEROL SULFATE HFA [Concomitant]
     Active Substance: ALBUTEROL SULFATE
     Dosage: AS NEEDED
     Route: 055
  3. ALBUTEROL. [Concomitant]
     Active Substance: ALBUTEROL
     Dosage: 90.0UG AS REQUIRED
  4. SYMBICORT [Suspect]
     Active Substance: BUDESONIDE\FORMOTEROL FUMARATE DIHYDRATE
     Indication: CHRONIC OBSTRUCTIVE PULMONARY DISEASE
     Dosage: 80/4.5 MCG, UNKNOWN UNKNOWN
     Route: 055
  5. SYMBICORT [Suspect]
     Active Substance: BUDESONIDE\FORMOTEROL FUMARATE DIHYDRATE
     Indication: ASTHMA
     Dosage: 160/4.5 LESS THAN PRESCRIBED, UNKNOWN FREQUENCY UNKNOWN
     Route: 055
     Dates: end: 201301
  6. SYMBICORT [Suspect]
     Active Substance: BUDESONIDE\FORMOTEROL FUMARATE DIHYDRATE
     Indication: CHRONIC OBSTRUCTIVE PULMONARY DISEASE
     Dosage: 160/4.5, TWO PUFFS TWICE DAILY UNKNOWN
     Route: 055
     Dates: start: 201301
  7. METOPROLOL SUCCINATE. [Suspect]
     Active Substance: METOPROLOL SUCCINATE
     Indication: CARDIAC DISORDER
     Route: 048
     Dates: start: 20120619
  8. LORAZEPAM. [Concomitant]
     Active Substance: LORAZEPAM
     Dosage: AS NEEDED
     Route: 048
  9. SERTRALINE HYDROCHLORIDE. [Concomitant]
     Active Substance: SERTRALINE HYDROCHLORIDE
     Route: 048
     Dates: start: 20121018
  10. NIFEDIPINE. [Concomitant]
     Active Substance: NIFEDIPINE
     Route: 048
  11. SYMBICORT [Suspect]
     Active Substance: BUDESONIDE\FORMOTEROL FUMARATE DIHYDRATE
     Indication: ASTHMA
     Dosage: 160/4.5, TWO PUFFS TWICE DAILY UNKNOWN
     Route: 055
     Dates: start: 201301
  12. SYMBICORT [Suspect]
     Active Substance: BUDESONIDE\FORMOTEROL FUMARATE DIHYDRATE
     Indication: CHRONIC OBSTRUCTIVE PULMONARY DISEASE
     Dosage: 160/4.5, TWO PUFFS TWICE DAILY UNKNOWN
     Route: 055
  13. MORPHINE [Suspect]
     Active Substance: MORPHINE
     Route: 065
  14. FLEXERIL [Concomitant]
     Active Substance: CYCLOBENZAPRINE HYDROCHLORIDE
     Route: 048
     Dates: start: 20120906
  15. GABAPENTIN. [Concomitant]
     Active Substance: GABAPENTIN
     Route: 048
     Dates: start: 20121031
  16. SINGULAIR [Concomitant]
     Active Substance: MONTELUKAST SODIUM
     Route: 048
     Dates: start: 20120510
  17. VITAMIN D3 ALOE [Concomitant]
     Dosage: 120 MG- 1000 UNIT- 10 MG-400 MCG -200 MCG- 100 MCG 1 TABLET DAILY
     Route: 048
     Dates: start: 20120509
  18. VITAMIN E [Concomitant]
     Active Substance: .ALPHA.-TOCOPHEROL
     Dosage: 1000 UNITS DAILY
     Route: 048
     Dates: start: 20120509
  19. NIFEDIPINE. [Concomitant]
     Active Substance: NIFEDIPINE
     Route: 048
  20. REMERON [Concomitant]
     Active Substance: MIRTAZAPINE
     Indication: PAIN
     Route: 048
  21. FOLVITE [Concomitant]
     Active Substance: FOLIC ACID
     Indication: CONSTIPATION
     Dosage: DAILY
     Route: 048
  22. SYMBICORT [Suspect]
     Active Substance: BUDESONIDE\FORMOTEROL FUMARATE DIHYDRATE
     Indication: PNEUMONIA
     Dosage: 160/4.5, TWO PUFFS TWICE DAILY UNKNOWN
     Route: 055
  23. PRILOSEC [Suspect]
     Active Substance: OMEPRAZOLE MAGNESIUM
     Route: 048
  24. ALLEGRA [Concomitant]
     Active Substance: FEXOFENADINE HYDROCHLORIDE
     Dosage: 180.0MG AS REQUIRED
     Route: 048
  25. CLONIDINE HYDROCHLORIDE. [Concomitant]
     Active Substance: CLONIDINE HYDROCHLORIDE
     Dosage: 0.1MG AS REQUIRED
     Route: 048
     Dates: start: 20120829
  26. PRAVASTATIN SODIUM. [Concomitant]
     Active Substance: PRAVASTATIN SODIUM
     Route: 048
     Dates: start: 20120924
  27. ALDACTONE [Concomitant]
     Active Substance: SPIRONOLACTONE
     Route: 048
     Dates: start: 20120809
  28. SYMBICORT [Suspect]
     Active Substance: BUDESONIDE\FORMOTEROL FUMARATE DIHYDRATE
     Indication: ASTHMA
     Dosage: 80/4.5 MCG, UNKNOWN UNKNOWN
     Route: 055
  29. SYMBICORT [Suspect]
     Active Substance: BUDESONIDE\FORMOTEROL FUMARATE DIHYDRATE
     Indication: PNEUMONIA
     Dosage: 160/4.5 LESS THAN PRESCRIBED, UNKNOWN FREQUENCY UNKNOWN
     Route: 055
     Dates: end: 201301
  30. DIOVAN [Concomitant]
     Active Substance: VALSARTAN
     Route: 048
     Dates: start: 20120519
  31. ASPIRIN. [Concomitant]
     Active Substance: ASPIRIN
  32. CARVEDILOL. [Concomitant]
     Active Substance: CARVEDILOL
     Dosage: TAKE ONE TABLET TWO TIMES DAILY WITH MEALS
     Route: 048
  33. MIRALAX [Concomitant]
     Active Substance: POLYETHYLENE GLYCOL 3350
     Indication: CONSTIPATION
     Route: 048
  34. MAGNESIUM [Concomitant]
     Active Substance: MAGNESIUM
     Indication: CONSTIPATION
     Dosage: DAILY
     Route: 048
  35. SYMBICORT [Suspect]
     Active Substance: BUDESONIDE\FORMOTEROL FUMARATE DIHYDRATE
     Indication: PNEUMONIA
     Dosage: 160 MCG-4.5, 2 PUFFS  TWO TIMES EVERYDAY UNKNOWN
     Route: 055
     Dates: start: 20120509
  36. SYMBICORT [Suspect]
     Active Substance: BUDESONIDE\FORMOTEROL FUMARATE DIHYDRATE
     Indication: PNEUMONIA
     Dosage: 160/4.5, TWO PUFFS TWICE DAILY UNKNOWN
     Route: 055
     Dates: start: 201301
  37. ADALAT CC [Concomitant]
     Active Substance: NIFEDIPINE
     Route: 048
     Dates: start: 20120526
  38. ALBUTEROL SULFATE HFA [Concomitant]
     Active Substance: ALBUTEROL SULFATE
     Dosage: 90 MCG 2 PUFFS, EVERY 4-6 HOURS
     Route: 055
     Dates: start: 20120510
  39. ALLEGRA [Concomitant]
     Active Substance: FEXOFENADINE HYDROCHLORIDE
     Route: 048
     Dates: start: 20120705
  40. DEXILANT [Concomitant]
     Active Substance: DEXLANSOPRAZOLE
     Route: 048
     Dates: start: 20120509
  41. VITAMIN B12 [Concomitant]
     Active Substance: CYANOCOBALAMIN
     Route: 048
     Dates: start: 20120509
  42. VITAMIN C [Concomitant]
     Active Substance: ASCORBIC ACID
     Route: 048
     Dates: start: 20120509
  43. CYMBALTA [Concomitant]
     Active Substance: DULOXETINE HYDROCHLORIDE
  44. LOSARTAN. [Concomitant]
     Active Substance: LOSARTAN
     Route: 048
  45. LIPITOR [Concomitant]
     Active Substance: ATORVASTATIN CALCIUM
     Route: 048
  46. SYMBICORT [Suspect]
     Active Substance: BUDESONIDE\FORMOTEROL FUMARATE DIHYDRATE
     Indication: PNEUMONIA
     Dosage: 80/4.5 MCG, UNKNOWN UNKNOWN
     Route: 055
  47. SYMBICORT [Suspect]
     Active Substance: BUDESONIDE\FORMOTEROL FUMARATE DIHYDRATE
     Indication: ASTHMA
     Dosage: 160 MCG-4.5, 2 PUFFS  TWO TIMES EVERYDAY UNKNOWN
     Route: 055
     Dates: start: 20120509
  48. LOW DOSE ASPIRIN EC [Concomitant]
     Route: 048
     Dates: start: 20120509
  49. ALDACTONE [Concomitant]
     Active Substance: SPIRONOLACTONE
  50. VITAMIN B COMPLEX [Concomitant]
     Active Substance: CYANOCOBALAMIN\DEXPANTHENOL\NIACINAMIDE\PYRIDOXINE HYDROCHLORIDE\RIBOFLAVIN 5^-PHOSPHATE SODIUM\THIAMINE HYDROCHLORIDE\VITAMIN B COMPLEX
     Route: 048
     Dates: start: 20120509
  51. WOMENS DAILY MULTIVITAMIN [Concomitant]
     Dosage: 18 MG- 0.4 MG- 450 MG , 1 TABLET DAILY
     Route: 048
     Dates: start: 20120509
  52. XOPENEX [Concomitant]
     Active Substance: LEVALBUTEROL HYDROCHLORIDE
     Dosage: 1.25 MG/3 ML INHALE 3 ML BY NEBULISTAION ROUTE EVERY 8 HOURS
     Dates: start: 20120510
  53. HYDROMORPHONE [Concomitant]
     Active Substance: HYDROMORPHONE
     Indication: PAIN
     Route: 048
  54. SYMBICORT [Suspect]
     Active Substance: BUDESONIDE\FORMOTEROL FUMARATE DIHYDRATE
     Indication: CHRONIC OBSTRUCTIVE PULMONARY DISEASE
     Dosage: 160/4.5 LESS THAN PRESCRIBED, UNKNOWN FREQUENCY UNKNOWN
     Route: 055
     Dates: end: 201301
  55. SYMBICORT [Suspect]
     Active Substance: BUDESONIDE\FORMOTEROL FUMARATE DIHYDRATE
     Indication: ASTHMA
     Dosage: 160/4.5, TWO PUFFS TWICE DAILY UNKNOWN
     Route: 055
  56. TYLENOL [Suspect]
     Active Substance: ACETAMINOPHEN
     Indication: PAIN
     Route: 048
  57. FLONASE [Concomitant]
     Active Substance: FLUTICASONE PROPIONATE
     Route: 045
     Dates: start: 20120510
  58. LORAZEPAM. [Concomitant]
     Active Substance: LORAZEPAM
     Route: 048
  59. ZOLOFT [Concomitant]
     Active Substance: SERTRALINE HYDROCHLORIDE
     Indication: ANXIETY
  60. FISH OIL [Concomitant]
     Active Substance: FISH OIL
     Indication: CONSTIPATION
     Dosage: DAILY
     Route: 048

REACTIONS (38)
  - Pneumonia [Recovered/Resolved]
  - Malaise [Unknown]
  - Intervertebral disc degeneration [Unknown]
  - Essential hypertension [Unknown]
  - Gastritis [Unknown]
  - Hypercholesterolaemia [Unknown]
  - Musculoskeletal pain [Unknown]
  - Knee deformity [Unknown]
  - Gait disturbance [Unknown]
  - Fibromyalgia [Unknown]
  - Diabetes mellitus [Unknown]
  - Osteoarthritis [Unknown]
  - Off label use [Unknown]
  - Drug dose omission [Not Recovered/Not Resolved]
  - Arthritis [Not Recovered/Not Resolved]
  - Speech disorder [Not Recovered/Not Resolved]
  - Urinary incontinence [Unknown]
  - Haemorrhoids [Unknown]
  - Urethral stenosis [Unknown]
  - Bronchitis [Unknown]
  - Bronchitis chronic [Unknown]
  - Cognitive disorder [Unknown]
  - Nausea [Unknown]
  - Depression [Unknown]
  - Renal failure [Unknown]
  - Respiratory disorder [Unknown]
  - Peripheral venous disease [Unknown]
  - Osteopenia [Unknown]
  - Chronic idiopathic pain syndrome [Unknown]
  - Productive cough [Unknown]
  - Anxiety [Unknown]
  - Pulmonary oedema [Unknown]
  - Asthma [Unknown]
  - Hypertension [Unknown]
  - Fall [Unknown]
  - Foreign body in respiratory tract [Unknown]
  - Blood pressure fluctuation [Recovered/Resolved]
  - Osteoarthritis [Unknown]

NARRATIVE: CASE EVENT DATE: 201301
